FAERS Safety Report 6051232-0 (Version None)
Quarter: 2009Q1

REPORT INFORMATION
  Report Type: 
  Country: None (occurrence: None)
  Receive Date: 20090126
  Receipt Date: 20090114
  Transmission Date: 20090719
  Serious: Yes (Other)
  Sender: FDA-Public Use
  Company Number: DE-PFIZER INC-2009156919

PATIENT

DRUGS (2)
  1. CAMPTOSAR [Suspect]
     Indication: GLIOBLASTOMA
  2. BEVACIZUMAB [Suspect]
     Indication: GLIOBLASTOMA

REACTIONS (2)
  - FALL [None]
  - PELVIC FRACTURE [None]
